FAERS Safety Report 4651131-2 (Version None)
Quarter: 2005Q2

REPORT INFORMATION
  Report Type: 
  Country: None (occurrence: None)
  Receive Date: 20050503
  Receipt Date: 20050419
  Transmission Date: 20051028
  Serious: Yes (Disabling, Other)
  Sender: FDA-Public Use
  Company Number: ZA-JNJFOC-20050405821

PATIENT
  Sex: Female
  Weight: 85 kg

DRUGS (19)
  1. CAELYX [Suspect]
     Indication: OVARIAN CANCER
     Dosage: RECEIVED A CYCLE ON 01-APR-2005; NEXT ONE DUE 29-APR-2005
     Route: 042
  2. NEXIUM [Concomitant]
  3. PANTOPRAZOLE SODIUM [Concomitant]
  4. PANKREOFLAT [Concomitant]
  5. PANKREOFLAT [Concomitant]
  6. PANKREOFLAT [Concomitant]
  7. PANKREOFLAT [Concomitant]
  8. BUSCOPAN [Concomitant]
  9. DOMPERIDONE [Concomitant]
  10. CIPROFLOXACIN [Concomitant]
  11. CELEBREX [Concomitant]
  12. BEROTEC [Concomitant]
  13. OXAZEPAM [Concomitant]
  14. ELTROXIN [Concomitant]
  15. CITALOPRAM HYDROBROMIDE [Concomitant]
  16. TELMISARTAN-HYDROCHLOROTHIAZIDE [Concomitant]
  17. DURAGESIC-100 [Concomitant]
  18. MORPHINE SULFATE [Concomitant]
  19. FLUOXETINE HCL [Concomitant]

REACTIONS (1)
  - CEREBROVASCULAR ACCIDENT [None]
